FAERS Safety Report 4773692-5 (Version None)
Quarter: 2005Q3

REPORT INFORMATION
  Report Type: 
  Country: None (occurrence: None)
  Receive Date: 20050914
  Receipt Date: 20050601
  Transmission Date: 20060218
  Serious: Yes (Other)
  Sender: FDA-Public Use
  Company Number: 403714

PATIENT
  Age: 59 Year
  Sex: Female
  Weight: 61.2 kg

DRUGS (1)
  1. BONIVA [Suspect]
     Indication: OSTEOPOROSIS
     Dosage: 150 MG 1 PER DAY ORAL
     Route: 048
     Dates: start: 20050501, end: 20050601

REACTIONS (7)
  - CHILLS [None]
  - FATIGUE [None]
  - HEADACHE [None]
  - INFLUENZA LIKE ILLNESS [None]
  - PAIN [None]
  - PYREXIA [None]
  - TREMOR [None]
